FAERS Safety Report 24232803 (Version 1)
Quarter: 2024Q3

REPORT INFORMATION
  Report Type: Spontaneous
  Country: CN (occurrence: CN)
  Receive Date: 20240821
  Receipt Date: 20240821
  Transmission Date: 20241016
  Serious: Yes (Hospitalization, Other)
  Sender: RISING PHARMACEUTICALS
  Company Number: CN-RISINGPHARMA-CN-2024RISLIT00287

PATIENT
  Age: 58 Year
  Sex: Male

DRUGS (1)
  1. CAPECITABINE [Suspect]
     Active Substance: CAPECITABINE
     Indication: Rectal cancer
     Route: 048

REACTIONS (2)
  - Cardiogenic shock [Recovered/Resolved]
  - Cardiac arrest [Recovered/Resolved]
